FAERS Safety Report 10234128 (Version 1)
Quarter: 2014Q1

REPORT INFORMATION
  Report Type: Spontaneous
  Country: US (occurrence: None)
  Receive Date: 20140306
  Receipt Date: 20140306
  Transmission Date: 20141002
  Serious: Yes (Hospitalization)
  Sender: FDA-Public Use
  Company Number: 163-21880-13052922

PATIENT
  Age: 69 Year
  Sex: Male

DRUGS (12)
  1. REVLIMID (LENALIDOMIDE) (CAPSULES) [Suspect]
     Indication: PLASMA CELL MYELOMA
     Dosage: 12.5 MG, 7 IN 14 D, PO
     Route: 048
     Dates: start: 201302
  2. TRIBENZOR (TRIBENZOR) (UNKNOWN) [Concomitant]
  3. ACYCLOVIR (ACICLOVIR) (UNKNOWN) [Concomitant]
  4. OXYCODONE (OXYCODONE) (UNKNOWN) (OXYCODONE) [Concomitant]
  5. NEXIUM (ESOMEPRAZOLE) (UNKNOWN) [Concomitant]
  6. ASPIRIN (ACETYLSALICYLIC ACID) (UNKNOWN) (ACETYLSALICYLIC ACID) [Concomitant]
  7. PRAVACHOL (PRAVASTATIN SODIUM) (UNKNOWN) [Concomitant]
  8. CREON (PANCRELIPASE) (UNKNOWN) [Concomitant]
  9. LORAZEPAM (LORAZEPAM) (UNKNOWN) [Concomitant]
  10. NORVASC (AMLODIPINE BESILATE) (UNKNOWN) [Concomitant]
  11. HYDRALAZINE (HYDRALAZINE) (UNKNOWN) [Concomitant]
  12. METOPROLOL (METOPROLOL) (UNKNOWN) [Concomitant]

REACTIONS (1)
  - Renal failure [None]
